FAERS Safety Report 15315243 (Version 2)
Quarter: 2018Q3

REPORT INFORMATION
  Report Type: Spontaneous
  Country: ZA (occurrence: ZA)
  Receive Date: 20180824
  Receipt Date: 20180927
  Transmission Date: 20181010
  Serious: No
  Sender: FDA-Public Use
  Company Number: ZA-BAYER-2018-156042

PATIENT
  Sex: Female

DRUGS (1)
  1. MIRENA [Suspect]
     Active Substance: LEVONORGESTREL
     Dosage: 20 MCG/24HR, CONT
     Route: 015
     Dates: start: 20180621

REACTIONS (4)
  - Vaginal infection [Recovered/Resolved]
  - Uterine pain [None]
  - Dysmenorrhoea [None]
  - Amenorrhoea [None]

NARRATIVE: CASE EVENT DATE: 2018
